FAERS Safety Report 4907430-X (Version None)
Quarter: 2006Q1

REPORT INFORMATION
  Report Type: 
  Country: None (occurrence: None)
  Receive Date: 20060208
  Receipt Date: 20060203
  Transmission Date: 20060701
  Serious: Yes (Hospitalization, Other)
  Sender: FDA-Public Use
  Company Number: TCI2005A04788

PATIENT
  Age: 81 Year
  Sex: Male

DRUGS (10)
  1. LEUPLIN [Suspect]
     Indication: PROSTATE CANCER
     Dosage: 3.75 MG (3.75 MG 1 IN 28D)
     Route: 058
  2. GASPORT         (FAMOTIDINE) [Concomitant]
  3. PIETENALE                   (TICLOPIDINE HYDROCHLORIDE) [Concomitant]
  4. MARZULENE S                        (MARZULENE S)   (GRANULATE) [Concomitant]
  5. JIRUSTAN L              (CHLORMADINONE ACETATE) [Concomitant]
  6. SATANOLOL         (DIFENIDOL HYDROCHLORIDE) [Concomitant]
  7. ................. [Concomitant]
  8. .................. [Concomitant]
  9. ........................ [Concomitant]
  10. TICLOPIDINE HCL [Concomitant]

REACTIONS (18)
  - ACUTE RESPIRATORY DISTRESS SYNDROME [None]
  - ASTHENIA [None]
  - BLOOD PRESSURE DECREASED [None]
  - BLOOD PRESSURE SYSTOLIC INCREASED [None]
  - BRONCHIAL DISORDER [None]
  - DISSEMINATED INTRAVASCULAR COAGULATION [None]
  - ELECTROLYTE IMBALANCE [None]
  - HYPOKALAEMIA [None]
  - HYPOXIA [None]
  - INTERSTITIAL LUNG DISEASE [None]
  - MITRAL VALVE INCOMPETENCE [None]
  - OEDEMA PERIPHERAL [None]
  - ORAL INTAKE REDUCED [None]
  - PLEURAL EFFUSION [None]
  - PNEUMONIA ASPIRATION [None]
  - PULMONARY CONGESTION [None]
  - PULMONARY HYPERTENSION [None]
  - RIGHT VENTRICULAR FAILURE [None]
